FAERS Safety Report 17674816 (Version 2)
Quarter: 2020Q2

REPORT INFORMATION
  Report Type: Spontaneous
  Country: US (occurrence: US)
  Receive Date: 20200416
  Receipt Date: 20200519
  Transmission Date: 20200714
  Serious: No
  Sender: FDA-Public Use
  Company Number: US-ASTRAZENECA-2020SE49850

PATIENT
  Age: 20685 Day
  Sex: Female

DRUGS (1)
  1. BYDUREON BCISE [Suspect]
     Active Substance: EXENATIDE
     Route: 065

REACTIONS (9)
  - Product dose omission [Unknown]
  - Injection site extravasation [Unknown]
  - Visual impairment [Unknown]
  - Injection site erythema [Unknown]
  - Device delivery system issue [Unknown]
  - Glycosylated haemoglobin abnormal [Unknown]
  - Injection site mass [Unknown]
  - Device issue [Unknown]
  - Device leakage [Unknown]

NARRATIVE: CASE EVENT DATE: 20200407
